FAERS Safety Report 7338051-X (Version None)
Quarter: 2011Q1

REPORT INFORMATION
  Report Type: 
  Country: None (occurrence: None)
  Receive Date: 20110308
  Receipt Date: 20110223
  Transmission Date: 20110831
  Serious: Yes (Other)
  Sender: FDA-Public Use
  Company Number: PHHY2009CA20528

PATIENT
  Sex: Female

DRUGS (2)
  1. ACLASTA [Suspect]
     Dosage: 5 MG / 100 ML
     Dates: start: 20080523
  2. ACLASTA [Suspect]
     Dosage: 5 MG / 100ML, ONCE A YEAR
     Route: 042
     Dates: start: 20100129

REACTIONS (4)
  - PAIN [None]
  - FEELING ABNORMAL [None]
  - MALAISE [None]
  - BEDRIDDEN [None]
